FAERS Safety Report 24738698 (Version 1)
Quarter: 2024Q4

REPORT INFORMATION
  Report Type: Spontaneous
  Country: US (occurrence: US)
  Receive Date: 20241216
  Receipt Date: 20241216
  Transmission Date: 20250115
  Serious: No
  Sender: COVIS PHARMA GMBH
  Company Number: US-Covis Pharma GmbH-2024COV01413

PATIENT
  Sex: Female

DRUGS (4)
  1. OMNARIS [Suspect]
     Active Substance: CICLESONIDE
     Dosage: 2 SPRAY IN EACH NOSTRIL TWICE DAILY
     Route: 045
  2. FLONASE [Concomitant]
     Active Substance: FLUTICASONE PROPIONATE
  3. OLOPATADINE [Concomitant]
     Active Substance: OLOPATADINE
  4. AZELASTINE [Concomitant]
     Active Substance: AZELASTINE

REACTIONS (3)
  - Rhinorrhoea [Unknown]
  - Product dose omission issue [Unknown]
  - Off label use [Unknown]
